FAERS Safety Report 24289126 (Version 1)
Quarter: 2024Q3

REPORT INFORMATION
  Report Type: Spontaneous
  Country: US (occurrence: US)
  Receive Date: 20240906
  Receipt Date: 20240906
  Transmission Date: 20241017
  Serious: Yes (Death)
  Sender: ZEALAND PHARMACEUTICALS
  Company Number: US-ZPPROD-ZP24US000929

PATIENT

DRUGS (3)
  1. ZEGALOGUE [Suspect]
     Active Substance: DASIGLUCAGON
     Dosage: UNK
  2. TRESIBA [Suspect]
     Active Substance: INSULIN DEGLUDEC
     Dosage: UNKNOWN
  3. NOVOLOG [Suspect]
     Active Substance: INSULIN ASPART
     Dosage: UNKNOWN

REACTIONS (1)
  - Death [Fatal]
